FAERS Safety Report 8691383 (Version 2)
Quarter: 2012Q4

REPORT INFORMATION
  Report Type: Report from Study
  Country: US (occurrence: US)
  Receive Date: 20120730
  Receipt Date: 20120914
  Transmission Date: 20130627
  Serious: Yes (Disabling, Other)
  Sender: FDA-Public Use
  Company Number: US-ASTELLAS-2012US006417

PATIENT
  Age: 58 Year
  Sex: Female
  Weight: 71 kg

DRUGS (2)
  1. ERLOTINIB TABLET [Suspect]
     Indication: NON-SMALL CELL LUNG CANCER
     Dosage: 150 mg, UID/QD
     Route: 048
     Dates: start: 20110914, end: 20120710
  2. DECADRON [Suspect]
     Indication: BRAIN OEDEMA
     Dosage: 4 mg, bid
     Route: 065

REACTIONS (9)
  - Vitreous floaters [Unknown]
  - Hyperglycaemia [Unknown]
  - Amnesia [Unknown]
  - Headache [Unknown]
  - Muscular weakness [Unknown]
  - Metastases to central nervous system [Unknown]
  - Fatigue [Unknown]
  - Asthenia [Unknown]
  - Lethargy [Unknown]
